FAERS Safety Report 7163239-0 (Version None)
Quarter: 2010Q4

REPORT INFORMATION
  Report Type: 
  Country: None (occurrence: None)
  Receive Date: 20101215
  Receipt Date: 20100315
  Transmission Date: 20110411
  Serious: Yes (Hospitalization, Disabling, Other)
  Sender: FDA-Public Use
  Company Number: SE-PFIZER INC-2009312590

PATIENT
  Age: 66 Year
  Sex: Male
  Weight: 90 kg

DRUGS (1)
  1. PRAMIPEXOLE DIHYDROCHLORIDE [Suspect]
     Indication: RESTLESS LEGS SYNDROME
     Dosage: 5 MG
     Dates: start: 20091204, end: 20091219

REACTIONS (1)
  - ATRIAL FIBRILLATION [None]
